FAERS Safety Report 10296146 (Version 1)
Quarter: 2014Q3

REPORT INFORMATION
  Report Type: Spontaneous
  Country: US (occurrence: US)
  Receive Date: 20140710
  Receipt Date: 20140710
  Transmission Date: 20150326
  Serious: No
  Sender: FDA-Public Use
  Company Number: US-PURDUE-USA-2014-0114400

PATIENT
  Age: 60 Year
  Sex: Female

DRUGS (2)
  1. BUTRANS [Suspect]
     Active Substance: BUPRENORPHINE
     Dosage: 15 MCG/HR, UNK
     Route: 062
     Dates: start: 201404, end: 201405
  2. BUTRANS [Suspect]
     Active Substance: BUPRENORPHINE
     Indication: BACK PAIN
     Dosage: 20 MCG/HR, WEEKLY
     Route: 062
     Dates: start: 20140521, end: 20140525

REACTIONS (5)
  - Drug withdrawal syndrome [Not Recovered/Not Resolved]
  - Insomnia [Recovered/Resolved]
  - Nightmare [Unknown]
  - Inadequate analgesia [Recovered/Resolved]
  - Nausea [Unknown]

NARRATIVE: CASE EVENT DATE: 201404
